FAERS Safety Report 20891039 (Version 1)
Quarter: 2022Q2

REPORT INFORMATION
  Report Type: Spontaneous
  Country: US (occurrence: US)
  Receive Date: 20220530
  Receipt Date: 20220530
  Transmission Date: 20220721
  Serious: Yes (Hospitalization, Other)
  Sender: FDA-Public Use
  Company Number: US-GLENMARK PHARMACEUTICALS-2022GMK072510

PATIENT

DRUGS (3)
  1. NITROGLYCERIN [Suspect]
     Active Substance: NITROGLYCERIN
     Indication: Angina pectoris
     Dosage: 1 DOSAGE FORM, AT THE ONSET OF AN ATTACK, ONE TABLET UNDER THE TONGUE (DEFECTIVE BATCH)
     Route: 060
  2. NITROGLYCERIN [Suspect]
     Active Substance: NITROGLYCERIN
     Dosage: 1 DOSAGE FORM, PRN, 1 ADDITIONAL TABLET MIGHT BE ADMINISTERED EVERY 5 MINUTES AS NEEDED (DEFECTIVE B
     Route: 060
  3. NITROGLYCERIN [Suspect]
     Active Substance: NITROGLYCERIN
     Dosage: 1 DOSAGE FORM, PRN (FROM OLD BATCH WHICH WORKING FOR HIM)
     Route: 060

REACTIONS (5)
  - Myocardial infarction [Recovered/Resolved]
  - Drug ineffective [Unknown]
  - Paraesthesia oral [Unknown]
  - Product quality issue [Unknown]
  - Product taste abnormal [Unknown]

NARRATIVE: CASE EVENT DATE: 20220506
